FAERS Safety Report 16721716 (Version 1)
Quarter: 2019Q3

REPORT INFORMATION
  Report Type: Spontaneous
  Country: ES (occurrence: ES)
  Receive Date: 20190820
  Receipt Date: 20190820
  Transmission Date: 20191005
  Serious: Yes (Other)
  Sender: FDA-Public Use
  Company Number: ES-TEVA-2019-ES-1093144

PATIENT
  Age: 73 Year
  Sex: Male
  Weight: 79 kg

DRUGS (10)
  1. AFLUON 1 MG/ML SOLUCI?N PARA PULVERIZACI?N NASAL [Concomitant]
  2. DILIBAN 75 MG/650 MG COMPRIMIDOS [Concomitant]
     Active Substance: ACETAMINOPHEN\TRAMADOL HYDROCHLORIDE
  3. ALDACTONE [Suspect]
     Active Substance: SPIRONOLACTONE
     Indication: HYPERTENSION
     Dates: start: 20190516
  4. ZYLORIC 300 MG COMPRIMIDOS, 30 COMPRIMIDOS [Concomitant]
  5. PANTOPRAZOL TEVAGEN 20 MG COMPRIMIDOS GASTRORRESISTENTES EFG [Suspect]
     Active Substance: PANTOPRAZOLE SODIUM
     Dates: start: 20190516
  6. FUROSEMIDA CINFA 40 MG COMPRIMIDOS EFG, 30 COMPRIMIDOS [Concomitant]
  7. NOLOTIL 575 MG CAPSULAS DURAS [Concomitant]
  8. INEGY 10 MG/20 MG COMPRIMIDOS [Concomitant]
  9. DUROGESIC MATRIX 25 MICROGRAMOS/H PARCHES TRANSDERMICOS [Concomitant]
  10. LOSARTAN STADA 100 MG COMPRIMIDOS RECUBIERTOS CON PELICULA EFG, 28 COM [Concomitant]

REACTIONS (1)
  - Gynaecomastia [Not Recovered/Not Resolved]

NARRATIVE: CASE EVENT DATE: 20190701
